FAERS Safety Report 6227829 (Version 3)
Quarter: 2020Q3

REPORT INFORMATION
  Report Type: Report from Study
  Country: BE (occurrence: BE)
  Receive Date: 20070131
  Receipt Date: 20070618
  Transmission Date: 20201105
  Serious: Yes (Hospitalization)
  Sender: FDA-Public Use
  Company Number: BE-JNJFOC-20070106234

PATIENT
  Age: 14 Year
  Sex: Female

DRUGS (13)
  1. INFLIXIMAB [Suspect]
     Active Substance: INFLIXIMAB
     Indication: CROHN^S DISEASE
     Route: 042
  2. FLAGYL [Concomitant]
     Active Substance: METRONIDAZOLE\METRONIDAZOLE HYDROCHLORIDE
     Route: 048
  3. FUSIDATE SODIUM [Concomitant]
     Active Substance: FUSIDATE SODIUM
     Route: 061
  4. BACTROBAN [Concomitant]
     Active Substance: MUPIROCIN\MUPIROCIN CALCIUM
     Route: 061
  5. CLAVERSAL [Concomitant]
     Route: 048
  6. ENTEROL [Concomitant]
     Route: 048
  7. INFLIXIMAB [Suspect]
     Active Substance: INFLIXIMAB
     Route: 042
  8. INFLIXIMAB [Suspect]
     Active Substance: INFLIXIMAB
     Route: 042
  9. INFLIXIMAB [Suspect]
     Active Substance: INFLIXIMAB
     Route: 042
  10. OXYTETRACYCLINE HYDROCHLORIDE [Concomitant]
     Active Substance: OXYTETRACYCLINE HYDROCHLORIDE
     Route: 061
  11. INFLIXIMAB [Suspect]
     Active Substance: INFLIXIMAB
     Route: 042
  12. INFLIXIMAB [Suspect]
     Active Substance: INFLIXIMAB
     Route: 042
  13. INFLIXIMAB [Suspect]
     Active Substance: INFLIXIMAB
     Route: 042

REACTIONS (1)
  - Pseudomembranous colitis [Recovered/Resolved]

NARRATIVE: CASE EVENT DATE: 20061221
